FAERS Safety Report 8180931-X (Version None)
Quarter: 2012Q1

REPORT INFORMATION
  Report Type: 
  Country: None (occurrence: None)
  Receive Date: 20120301
  Receipt Date: 20120301
  Transmission Date: 20120608
  Serious: Yes (Other)
  Sender: FDA-Public Use
  Company Number: None

PATIENT
  Age: 63 Year
  Sex: Female
  Weight: 61.2356 kg

DRUGS (2)
  1. CRESTOR [Suspect]
     Indication: BLOOD CHOLESTEROL INCREASED
     Dosage: 20 MG 1 X DAY
     Dates: start: 20111010, end: 20111214
  2. CRESTOR [Suspect]
     Indication: BLOOD CHOLESTEROL INCREASED
     Dosage: 40 MG. 1 X DAY
     Dates: start: 20111215, end: 20120119

REACTIONS (3)
  - HYPERAESTHESIA [None]
  - MUSCLE SPASMS [None]
  - GAIT DISTURBANCE [None]
